FAERS Safety Report 15545846 (Version 1)
Quarter: 2018Q4

REPORT INFORMATION
  Report Type: Spontaneous
  Country: US (occurrence: US)
  Receive Date: 20181017
  Receipt Date: 20181017
  Transmission Date: 20190205
  Serious: No
  Sender: FDA-Public Use
  Company Number: None

PATIENT
  Age: 91 Year
  Sex: Female

DRUGS (2)
  1. LETROZOLE TAB 2.5MG [Suspect]
     Active Substance: LETROZOLE
     Indication: BREAST CANCER FEMALE
     Dates: start: 201712
  2. LETROZOLE TAB 2.5MG [Suspect]
     Active Substance: LETROZOLE
     Indication: METASTASES TO BONE
     Dates: start: 201712

REACTIONS (2)
  - Onychoclasis [None]
  - Alopecia [None]

NARRATIVE: CASE EVENT DATE: 20181016
